FAERS Safety Report 13640155 (Version 1)
Quarter: 2017Q2

REPORT INFORMATION
  Report Type: Report from Study
  Country: US (occurrence: US)
  Receive Date: 20170609
  Receipt Date: 20170609
  Transmission Date: 20170830
  Serious: Yes (Other)
  Sender: FDA-Public Use
  Company Number: US-JAZZ-2017-US-006342

PATIENT
  Sex: Male

DRUGS (17)
  1. LYRICA [Concomitant]
     Active Substance: PREGABALIN
  2. HYDROCODONE/IBUPROFEN [Concomitant]
     Active Substance: HYDROCODONE\IBUPROFEN
  3. XYREM [Suspect]
     Active Substance: SODIUM OXYBATE
     Indication: NARCOLEPSY
     Dosage: 2.25 G, BID
     Route: 048
     Dates: start: 201303, end: 201304
  4. XYREM [Suspect]
     Active Substance: SODIUM OXYBATE
     Dosage: DOSE ADJUSTMENT
     Route: 048
     Dates: start: 201304, end: 201609
  5. XYREM [Suspect]
     Active Substance: SODIUM OXYBATE
     Dosage: 4.5 G, BID
     Route: 048
     Dates: start: 201609
  6. XANAX [Concomitant]
     Active Substance: ALPRAZOLAM
  7. TERAZOSIN [Concomitant]
     Active Substance: TERAZOSIN\TERAZOSIN HYDROCHLORIDE
  8. ZOLPIDEM TARTATE [Concomitant]
     Active Substance: ZOLPIDEM TARTRATE
  9. METOPROLOL TARTRATE. [Concomitant]
     Active Substance: METOPROLOL TARTRATE
  10. SIMVASTATIN. [Concomitant]
     Active Substance: SIMVASTATIN
  11. VICODIN [Concomitant]
     Active Substance: ACETAMINOPHEN\HYDROCODONE BITARTRATE
  12. ALPRAZOLAM. [Concomitant]
     Active Substance: ALPRAZOLAM
  13. AZOR                               /00595201/ [Concomitant]
     Active Substance: ALPRAZOLAM
  14. FLEXERIL                           /00821801/ [Concomitant]
     Active Substance: CEFIXIME
  15. CELEBREX [Concomitant]
     Active Substance: CELECOXIB
  16. GABAPENTIN. [Concomitant]
     Active Substance: GABAPENTIN
  17. AMBIEN [Concomitant]
     Active Substance: ZOLPIDEM TARTRATE

REACTIONS (4)
  - Neuropathy peripheral [Not Recovered/Not Resolved]
  - Therapeutic response unexpected [Unknown]
  - Spinal operation [Not Recovered/Not Resolved]
  - Pre-existing condition improved [Unknown]
